FAERS Safety Report 9162769 (Version 1)
Quarter: 2013Q1

REPORT INFORMATION
  Report Type: Spontaneous
  Country: PL (occurrence: PL)
  Receive Date: 20130314
  Receipt Date: 20130314
  Transmission Date: 20140127
  Serious: Yes (Hospitalization)
  Sender: FDA-Public Use
  Company Number: PL-ROXANE LABORATORIES, INC.-2013-RO-00352RO

PATIENT
  Age: 22 Year
  Sex: Female
  Weight: 53 kg

DRUGS (2)
  1. AZATHIOPRINE [Suspect]
     Indication: COLITIS ULCERATIVE
     Dosage: 100 MG
  2. THIOGUANINE [Suspect]
     Indication: COLITIS ULCERATIVE
     Dosage: 60 MG
     Route: 048

REACTIONS (4)
  - Pancreatitis [Recovered/Resolved]
  - Pancytopenia [Recovered/Resolved]
  - Infectious mononucleosis [Unknown]
  - Dermatitis herpetiformis [Unknown]
